FAERS Safety Report 6807232-3 (Version None)
Quarter: 2010Q2

REPORT INFORMATION
  Report Type: 
  Country: None (occurrence: None)
  Receive Date: 20100629
  Receipt Date: 20080806
  Transmission Date: 20101027
  Serious: No
  Sender: FDA-Public Use
  Company Number: US-PFIZER INC-2008065614

PATIENT
  Sex: Male
  Weight: 95.454 kg

DRUGS (5)
  1. VIAGRA [Suspect]
     Indication: ERECTILE DYSFUNCTION
     Route: 048
  2. GLIPIZIDE [Concomitant]
  3. METFORMIN HCL [Concomitant]
     Indication: DIABETES MELLITUS
  4. COZAAR [Concomitant]
  5. LOVASTATIN [Concomitant]

REACTIONS (2)
  - DRUG INEFFECTIVE [None]
  - GASTROOESOPHAGEAL REFLUX DISEASE [None]
